FAERS Safety Report 5316721-2 (Version None)
Quarter: 2007Q2

REPORT INFORMATION
  Report Type: 
  Country: None (occurrence: None)
  Receive Date: 20070501
  Receipt Date: 20070501
  Transmission Date: 20071010
  Serious: Yes (Death)
  Sender: FDA-Public Use
  Company Number: None

PATIENT
  Sex: Male
  Weight: 113.3993 kg

DRUGS (5)
  1. COLCHICINE  UNKNOWN [Suspect]
     Indication: GOUT
     Dosage: 0.6 MG  ONCE DAILY  PO
     Route: 048
     Dates: start: 20020910, end: 20050305
  2. COLCHICINE  UNKNOWN [Suspect]
     Indication: PROPHYLAXIS
     Dosage: 0.6 MG  ONCE DAILY  PO
     Route: 048
     Dates: start: 20020910, end: 20050305
  3. TRICOR [Suspect]
     Indication: HYPERTRIGLYCERIDAEMIA
     Dosage: 54 MG  ONCE DAILY  PO
     Route: 048
     Dates: start: 20020910, end: 20050223
  4. ALLOPURINOL [Concomitant]
  5. LEVAQUIN [Concomitant]

REACTIONS (19)
  - ASTHENIA [None]
  - AUTONOMIC NERVOUS SYSTEM IMBALANCE [None]
  - BRAIN STEM SYNDROME [None]
  - CONTRAINDICATION TO MEDICAL TREATMENT [None]
  - COORDINATION ABNORMAL [None]
  - DEMENTIA [None]
  - DRUG PRESCRIBING ERROR [None]
  - DRUG TOXICITY [None]
  - GAZE PALSY [None]
  - MEDICATION ERROR [None]
  - MUSCLE SPASTICITY [None]
  - MYELOPATHY [None]
  - NERVOUS SYSTEM DISORDER [None]
  - POLYNEUROPATHY [None]
  - QUADRIPARESIS [None]
  - RESPIRATORY ARREST [None]
  - RESPIRATORY FAILURE [None]
  - SENSORIMOTOR DISORDER [None]
  - SLEEP APNOEA SYNDROME [None]
